FAERS Safety Report 5278024-4 (Version None)
Quarter: 2007Q1

REPORT INFORMATION
  Report Type: 
  Country: None (occurrence: None)
  Receive Date: 20070321
  Receipt Date: 20070308
  Transmission Date: 20070707
  Serious: Yes (Death)
  Sender: FDA-Public Use
  Company Number: 2007JP000717

PATIENT
  Age: 73 Year
  Sex: Male
  Weight: 53.1 kg

DRUGS (4)
  1. FUNGUARD(MICAFUNGIN) INJECTION [Suspect]
     Indication: CANDIDA PNEUMONIA
     Dosage: 75 MG, BID, IV DRIP
     Route: 041
     Dates: start: 20070126, end: 20070205
  2. PRODIF INJECTION [Concomitant]
  3. ALBUMIN (ALBUMIN) FORMULATION UNKNOWN, [Concomitant]
  4. MEROPEN (MEROPENEM) FORMULATION UNKNOWN [Concomitant]

REACTIONS (4)
  - CANDIDA PNEUMONIA [None]
  - DISSEMINATED INTRAVASCULAR COAGULATION [None]
  - HEPATIC FUNCTION ABNORMAL [None]
  - JAUNDICE [None]
